FAERS Safety Report 17451342 (Version 1)
Quarter: 2020Q1

REPORT INFORMATION
  Report Type: Spontaneous
  Country: US (occurrence: US)
  Receive Date: 20200223
  Receipt Date: 20200223
  Transmission Date: 20200409
  Serious: Yes (Other)
  Sender: FDA-Public Use
  Company Number: None

PATIENT
  Age: 46 Year
  Sex: Female
  Weight: 64.8 kg

DRUGS (7)
  1. GLYCINATE [Concomitant]
  2. SUMATRIPTAN 50 MG [Suspect]
     Active Substance: SUMATRIPTAN SUCCINATE
     Indication: MIGRAINE
     Dosage: ?          QUANTITY:1 TABLET(S);OTHER FREQUENCY:UP TO 2X/DAY;?
     Route: 048
     Dates: start: 20200221, end: 20200223
  3. MSM [Concomitant]
     Active Substance: DIMETHYL SULFONE
  4. VITAMIN K [Concomitant]
     Active Substance: PHYTONADIONE
  5. GLUCOSAMINE-CHON [Concomitant]
  6. VITAMIN C [Concomitant]
     Active Substance: ASCORBIC ACID
  7. VIT D [Concomitant]
     Active Substance: VITAMIN D NOS

REACTIONS (3)
  - Heart rate increased [None]
  - Tachycardia [None]
  - Blood pressure increased [None]

NARRATIVE: CASE EVENT DATE: 20200223
